FAERS Safety Report 10949458 (Version 1)
Quarter: 2015Q1

REPORT INFORMATION
  Report Type: Spontaneous
  Country: GT (occurrence: GT)
  Receive Date: 20150324
  Receipt Date: 20150324
  Transmission Date: 20150721
  Serious: Yes (Hospitalization, Other)
  Sender: FDA-Public Use
  Company Number: GT-PFIZER INC-2015100972

PATIENT
  Age: 69 Year
  Weight: 150 kg

DRUGS (1)
  1. XELJANZ [Suspect]
     Active Substance: TOFACITINIB CITRATE
     Indication: ARTHRITIS
     Dosage: UNK
     Dates: start: 201501

REACTIONS (4)
  - Lung infection [Unknown]
  - Respiratory disorder [Unknown]
  - Nervous system disorder [Unknown]
  - Gastrointestinal disorder [Unknown]
